FAERS Safety Report 20624714 (Version 1)
Quarter: 2022Q1

REPORT INFORMATION
  Report Type: Spontaneous
  Country: US (occurrence: None)
  Receive Date: 20220323
  Receipt Date: 20220323
  Transmission Date: 20220423
  Serious: No
  Sender: FDA-Public Use
  Company Number: 2022A111636

PATIENT

DRUGS (1)
  1. FARXIGA [Suspect]
     Active Substance: DAPAGLIFLOZIN PROPANEDIOL
     Indication: Blood glucose abnormal
     Dosage: UNKNOWN
     Route: 048

REACTIONS (4)
  - Dehydration [Unknown]
  - Hunger [Unknown]
  - Dry mouth [Unknown]
  - Insomnia [Unknown]
